FAERS Safety Report 9458410 (Version 1)
Quarter: 2013Q3

REPORT INFORMATION
  Report Type: Spontaneous
  Country: US (occurrence: US)
  Receive Date: 20130814
  Receipt Date: 20130814
  Transmission Date: 20140515
  Serious: Yes (Death)
  Sender: FDA-Public Use
  Company Number: US-009507513-1308USA005729

PATIENT
  Sex: Female

DRUGS (1)
  1. A+D MEDICATED OINTMENT [Suspect]
     Route: 061

REACTIONS (2)
  - Death [Fatal]
  - Off label use [Unknown]
